FAERS Safety Report 25181621 (Version 2)
Quarter: 2025Q2

REPORT INFORMATION
  Report Type: Spontaneous
  Country: FR (occurrence: None)
  Receive Date: 20250410
  Receipt Date: 20250415
  Transmission Date: 20250717
  Serious: Yes (Hospitalization)
  Sender: ORION
  Company Number: None

PATIENT
  Age: 78 Year
  Sex: Male
  Weight: 83 kg

DRUGS (11)
  1. METHOTREXATE [Suspect]
     Active Substance: METHOTREXATE
     Indication: Rheumatoid arthritis
     Dates: start: 20250310, end: 20250316
  2. ATORVASTATIN [Concomitant]
     Active Substance: ATORVASTATIN
  3. METFORMIN HYDROCHLORIDE [Concomitant]
     Active Substance: METFORMIN HYDROCHLORIDE
  4. AMLODIPINE [Concomitant]
     Active Substance: AMLODIPINE BESYLATE
  5. LORMETAZEPAM [Concomitant]
     Active Substance: LORMETAZEPAM
  6. FOLIC ACID [Concomitant]
     Active Substance: FOLIC ACID
  7. FLUTICASONE FUROATE\VILANTEROL TRIFENATATE [Concomitant]
     Active Substance: FLUTICASONE FUROATE\VILANTEROL TRIFENATATE
  8. SOTALOL HYDROCHLORIDE [Concomitant]
     Active Substance: SOTALOL HYDROCHLORIDE
  9. CLOPIDOGREL [Concomitant]
     Active Substance: CLOPIDOGREL BISULFATE
  10. ASPIRIN [Concomitant]
     Active Substance: ASPIRIN
  11. SOLIFENACIN SUCCINATE [Concomitant]
     Active Substance: SOLIFENACIN SUCCINATE

REACTIONS (8)
  - Overdose [Unknown]
  - Inappropriate schedule of product administration [Recovered/Resolved]
  - Toxic skin eruption [Recovering/Resolving]
  - Pancytopenia [Recovered/Resolved]
  - Mucosal inflammation [Recovering/Resolving]
  - Herpes virus infection [Recovering/Resolving]
  - Respiratory distress [Unknown]
  - Product preparation error [Unknown]

NARRATIVE: CASE EVENT DATE: 20250310
